FAERS Safety Report 8606803 (Version 3)
Quarter: 2014Q2

REPORT INFORMATION
  Report Type: Spontaneous
  Country: US (occurrence: US)
  Receive Date: 20120611
  Receipt Date: 20140403
  Transmission Date: 20141212
  Serious: Yes (Hospitalization, Disabling, Other)
  Sender: FDA-Public Use
  Company Number: US-ASTRAZENECA-2012SE35739

PATIENT
  Age: 59 Year
  Sex: Female

DRUGS (30)
  1. NEXIUM [Suspect]
     Indication: GASTROOESOPHAGEAL REFLUX DISEASE
     Dosage: TWO TIMES A DAY
     Route: 048
     Dates: start: 2001
  2. NEXIUM [Suspect]
     Indication: GASTRIC DISORDER
     Dosage: TWO TIMES A DAY
     Route: 048
     Dates: start: 2001
  3. NEXIUM [Suspect]
     Indication: GASTROOESOPHAGEAL REFLUX DISEASE
     Route: 048
     Dates: start: 20080711
  4. NEXIUM [Suspect]
     Indication: GASTRIC DISORDER
     Route: 048
     Dates: start: 20080711
  5. PREVACID [Concomitant]
     Indication: GASTROOESOPHAGEAL REFLUX DISEASE
  6. SOMAC [Concomitant]
     Indication: GASTROOESOPHAGEAL REFLUX DISEASE
  7. PEPCID [Concomitant]
     Dates: start: 1980
  8. ZANTAC [Concomitant]
     Dates: start: 1994
  9. VITAMIN D [Concomitant]
  10. HYDROCHLOROT [Concomitant]
     Indication: CARDIAC DISORDER
     Route: 048
  11. PLAVIX [Concomitant]
     Indication: CARDIAC DISORDER
  12. PLAVIX [Concomitant]
     Indication: BLOOD DISORDER
  13. PROZAC [Concomitant]
     Indication: NERVE INJURY
  14. ZOLPIDEM [Concomitant]
     Indication: SLEEP DISORDER
     Route: 048
  15. AMLODIPINE [Concomitant]
     Indication: BLOOD PRESSURE INCREASED
     Route: 048
  16. HYDROCODONE [Concomitant]
     Indication: PAIN
  17. SOMA [Concomitant]
     Indication: MUSCLE SPASMS
  18. NAPROXEN [Concomitant]
     Dates: start: 20081002
  19. LEXAPRO [Concomitant]
     Dates: start: 20081002
  20. ALPRAZOLAM [Concomitant]
     Dates: start: 20081018
  21. TRAMADOL HCL [Concomitant]
     Dates: start: 20081031
  22. TEMAZEPAM [Concomitant]
     Dates: start: 20081031
  23. HYOSCYAMINE [Concomitant]
     Dates: start: 20081201
  24. FLUOXETINE [Concomitant]
     Dates: start: 20090109
  25. SINGULAIR [Concomitant]
     Dates: start: 20090306
  26. PANTOPRAZOLE [Concomitant]
     Dates: start: 20100216
  27. DIAZEPAM [Concomitant]
     Dates: start: 20100208
  28. CRESTOR [Concomitant]
     Dates: start: 20101227
  29. CARISOPRODOL [Concomitant]
     Dates: start: 20101231
  30. PREDNISONE [Concomitant]
     Dates: start: 20120117

REACTIONS (23)
  - Osteoporosis [Unknown]
  - Neoplasm malignant [Unknown]
  - Walking disability [Unknown]
  - Systemic lupus erythematosus [Unknown]
  - Wrist fracture [Unknown]
  - Angina pectoris [Unknown]
  - Ankle fracture [Unknown]
  - Aortic disorder [Unknown]
  - Calcium deficiency [Unknown]
  - Cataract [Unknown]
  - Chronic obstructive pulmonary disease [Unknown]
  - Bone pain [Unknown]
  - Lower limb fracture [Unknown]
  - Osteogenesis imperfecta [Unknown]
  - Peripheral vascular disorder [Unknown]
  - Rheumatoid arthritis [Unknown]
  - Vitamin D deficiency [Unknown]
  - Intervertebral disc degeneration [Unknown]
  - Osteoarthritis [Unknown]
  - Osteopenia [Unknown]
  - Lumbar spinal stenosis [Unknown]
  - Intervertebral disc protrusion [Unknown]
  - Depression [Unknown]
